FAERS Safety Report 12717058 (Version 1)
Quarter: 2016Q3

REPORT INFORMATION
  Report Type: Spontaneous
  Country: IN (occurrence: IN)
  Receive Date: 20160906
  Receipt Date: 20160906
  Transmission Date: 20161109
  Serious: Yes (Hospitalization)
  Sender: FDA-Public Use
  Company Number: IN-MYLANLABS-2016M1037412

PATIENT

DRUGS (1)
  1. ALPRAZOLAM. [Suspect]
     Active Substance: ALPRAZOLAM
     Indication: PRODUCT USED FOR UNKNOWN INDICATION
     Dosage: 35 TABLETS OF ALPRAZOLAM 0.25MG
     Route: 048

REACTIONS (9)
  - Urinary retention [Recovering/Resolving]
  - Suicide attempt [Recovered/Resolved]
  - Sinus tachycardia [Recovering/Resolving]
  - Hyporeflexia [Recovering/Resolving]
  - Irregular breathing [Recovering/Resolving]
  - Cyanosis [Recovering/Resolving]
  - Intentional overdose [Recovered/Resolved]
  - Miosis [Recovering/Resolving]
  - Coma [Recovered/Resolved]
